FAERS Safety Report 23090640 (Version 1)
Quarter: 2023Q4

REPORT INFORMATION
  Report Type: Spontaneous
  Country: CN (occurrence: CN)
  Receive Date: 20231020
  Receipt Date: 20231020
  Transmission Date: 20240109
  Serious: Yes (Hospitalization, Other)
  Sender: FDA-Public Use
  Company Number: CN-DSJP-DSJ-2023-142757

PATIENT
  Age: 36 Year
  Sex: Female
  Weight: 50 kg

DRUGS (2)
  1. TRASTUZUMAB DERUXTECAN [Suspect]
     Active Substance: TRASTUZUMAB DERUXTECAN
     Indication: Breast cancer
     Dosage: 100 MG, QD
     Route: 041
     Dates: start: 20230925, end: 20230925
  2. DEXTROSE [Concomitant]
     Active Substance: DEXTROSE\DEXTROSE MONOHYDRATE
     Indication: Vehicle solution use
     Dosage: 100 ML, QD
     Route: 041
     Dates: start: 20230925, end: 20230925

REACTIONS (7)
  - Mental disorder [Recovering/Resolving]
  - Anxiety [Recovering/Resolving]
  - Soliloquy [Recovering/Resolving]
  - Mental impairment [Recovering/Resolving]
  - Disorganised speech [Recovering/Resolving]
  - Thinking abnormal [Recovering/Resolving]
  - Language disorder [Recovering/Resolving]

NARRATIVE: CASE EVENT DATE: 20230925
